FAERS Safety Report 18788880 (Version 2)
Quarter: 2021Q1

REPORT INFORMATION
  Report Type: Report from Study
  Country: UA (occurrence: UA)
  Receive Date: 20210126
  Receipt Date: 20210128
  Transmission Date: 20210419
  Serious: Yes (Hospitalization, Other)
  Sender: FDA-Public Use
  Company Number: UA-SA-2013SA110682

PATIENT
  Age: 68 Year
  Sex: Male
  Weight: 87 kg

DRUGS (6)
  1. METHOTREXATE. [Suspect]
     Active Substance: METHOTREXATE
     Indication: RHEUMATOID ARTHRITIS
     Dosage: 15 MG,QW
     Route: 048
     Dates: start: 200508
  2. VASAR [Concomitant]
     Dosage: 40 MG,QD
     Route: 048
     Dates: start: 20111227
  3. FOLIC ACID. [Suspect]
     Active Substance: FOLIC ACID
     Indication: RHEUMATOID ARTHRITIS
     Dosage: 5 MG,QW
     Route: 048
     Dates: start: 200508
  4. METHYLPREDNISOLONE. [Concomitant]
     Active Substance: METHYLPREDNISOLONE
     Dosage: 4 MG,QD
     Route: 048
     Dates: start: 201007
  5. SARILUMAB [Suspect]
     Active Substance: SARILUMAB
     Indication: RHEUMATOID ARTHRITIS
     Dosage: 200 MG,QOW
     Route: 058
     Dates: start: 20130115, end: 20131022
  6. ATORIS [Concomitant]
     Active Substance: ATORVASTATIN CALCIUM
     Dosage: UNK
     Route: 048
     Dates: start: 20140909

REACTIONS (2)
  - Large intestine infection [Recovered/Resolved]
  - Large intestine infection [Recovered/Resolved]

NARRATIVE: CASE EVENT DATE: 20131027
